FAERS Safety Report 9030145 (Version 1)
Quarter: 2013Q1

REPORT INFORMATION
  Report Type: Spontaneous
  Country: US (occurrence: US)
  Receive Date: 20130125
  Receipt Date: 20130125
  Transmission Date: 20140127
  Serious: No
  Sender: FDA-Public Use
  Company Number: US-BAYER-2013-010225

PATIENT
  Age: 56 Year
  Sex: Male

DRUGS (3)
  1. CIPROFLOXACIN [Suspect]
     Indication: Q FEVER
     Dosage: UNK
  2. DOXYCYCLINE [Concomitant]
     Indication: Q FEVER
  3. TRIMETHOPRIM-SULFAMETHOXAZOLE [Suspect]
     Indication: Q FEVER

REACTIONS (2)
  - Tendon pain [None]
  - Hyperkalaemia [None]
